FAERS Safety Report 21577598 (Version 1)
Quarter: 2022Q4

REPORT INFORMATION
  Report Type: Spontaneous
  Country: CN (occurrence: CN)
  Receive Date: 20221110
  Receipt Date: 20221110
  Transmission Date: 20230112
  Serious: No
  Sender: FDA-Public Use
  Company Number: CN-FreseniusKabi-FK202214962

PATIENT
  Age: 45 Year
  Sex: Female
  Weight: 50 kg

DRUGS (2)
  1. AMINO ACIDS, SOURCE UNSPECIFIED [Suspect]
     Active Substance: AMINO ACIDS, SOURCE UNSPECIFIED
     Indication: Cholelithiasis
     Dosage: UNIT DOSE - 250 MILLILITER
     Route: 041
     Dates: start: 20221008, end: 20221011
  2. AMINO ACIDS, SOURCE UNSPECIFIED [Suspect]
     Active Substance: AMINO ACIDS, SOURCE UNSPECIFIED
     Indication: Cholangitis

REACTIONS (1)
  - Nausea [Recovered/Resolved]

NARRATIVE: CASE EVENT DATE: 20221011
